FAERS Safety Report 9309584 (Version 2)
Quarter: 2013Q4

REPORT INFORMATION
  Report Type: Spontaneous
  Country: US (occurrence: US)
  Receive Date: 20130525
  Receipt Date: 20131126
  Transmission Date: 20140711
  Serious: No
  Sender: FDA-Public Use
  Company Number: US-BRISTOL-MYERS SQUIBB COMPANY-17482894

PATIENT
  Age: 58 Year
  Sex: Male
  Weight: 99.32 kg

DRUGS (11)
  1. BYDUREON [Suspect]
     Indication: TYPE 2 DIABETES MELLITUS
     Route: 058
     Dates: start: 201212, end: 20130407
  2. METFORMIN HCL XR [Concomitant]
     Route: 048
     Dates: end: 20130409
  3. ACTOS [Concomitant]
  4. TRICOR [Concomitant]
  5. DIOVAN [Concomitant]
  6. SIMVASTATIN [Concomitant]
  7. FINASTERIDE [Concomitant]
  8. VITEX [Concomitant]
     Dosage: 1DF = 400
     Route: 042
  9. ACETYLSALICYLIC ACID [Concomitant]
  10. CALCIUM [Concomitant]
  11. FISH OIL [Concomitant]

REACTIONS (1)
  - Injection site mass [Recovering/Resolving]
